FAERS Safety Report 9090350 (Version 1)
Quarter: 2013Q1

REPORT INFORMATION
  Report Type: Report from Study
  Country: US (occurrence: US)
  Receive Date: 20130201
  Receipt Date: 20130201
  Transmission Date: 20140127
  Serious: No
  Sender: FDA-Public Use
  Company Number: US-ABBOTT-12P-163-1017985-00

PATIENT
  Age: 51 Year
  Sex: Female

DRUGS (8)
  1. HUMIRA [Suspect]
     Indication: RHEUMATOID ARTHRITIS
     Dates: start: 20121128
  2. NOVOLOG [Concomitant]
     Indication: DIABETES MELLITUS
  3. SPIRONOLACTONE [Concomitant]
     Indication: HYPERTENSION
  4. NORVASC [Concomitant]
     Indication: RENAL DISORDER
  5. LISINOPRIL [Concomitant]
     Indication: HYPERTENSION
  6. MULTIPLE VITAMINS [Concomitant]
     Indication: VITAMIN SUPPLEMENTATION
  7. FISH OIL [Concomitant]
     Indication: SUPPLEMENTATION THERAPY
  8. METHOTREXATE [Concomitant]
     Indication: RHEUMATOID ARTHRITIS

REACTIONS (1)
  - Blood glucose increased [Unknown]
